FAERS Safety Report 6289569-2 (Version None)
Quarter: 2009Q3

REPORT INFORMATION
  Report Type: 
  Country: None (occurrence: None)
  Receive Date: 20090730
  Receipt Date: 20090723
  Transmission Date: 20100115
  Serious: Yes (Hospitalization, Other)
  Sender: FDA-Public Use
  Company Number: CA-ALLERGAN-0910449US

PATIENT
  Age: 74 Year
  Sex: Male

DRUGS (1)
  1. BOTOX [Suspect]
     Indication: MUSCLE SPASTICITY
     Dosage: 525 UNITS, SINGLE
     Route: 030
     Dates: start: 20090506, end: 20090506

REACTIONS (5)
  - DYSPHAGIA [None]
  - EYELID PTOSIS [None]
  - HEMIPARESIS [None]
  - MUSCULAR WEAKNESS [None]
  - SPEECH DISORDER [None]
